FAERS Safety Report 14258752 (Version 4)
Quarter: 2018Q1

REPORT INFORMATION
  Report Type: Report from Study
  Country: None (occurrence: US)
  Receive Date: 20171207
  Receipt Date: 20180124
  Transmission Date: 20180508
  Serious: Yes (Hospitalization, Other)
  Sender: FDA-Public Use
  Company Number: US-ABBVIE-17K-163-2186252-00

PATIENT
  Age: 58 Year
  Sex: Female
  Weight: 85.81 kg

DRUGS (7)
  1. HUMIRA [Suspect]
     Active Substance: ADALIMUMAB
     Route: 058
     Dates: start: 201711
  2. ZOLOFT [Concomitant]
     Active Substance: SERTRALINE HYDROCHLORIDE
     Indication: DEPRESSION
  3. HUMIRA [Suspect]
     Active Substance: ADALIMUMAB
     Indication: CROHN^S DISEASE
     Route: 058
     Dates: start: 201601, end: 201710
  4. WELLBUTRIN [Concomitant]
     Active Substance: BUPROPION HYDROCHLORIDE
     Indication: DEPRESSION
  5. LIPITOR [Concomitant]
     Active Substance: ATORVASTATIN CALCIUM
     Indication: BLOOD CHOLESTEROL
  6. ASPIRIN. [Concomitant]
     Active Substance: ASPIRIN
     Indication: PRODUCT USED FOR UNKNOWN INDICATION
  7. METFORMIN [Concomitant]
     Active Substance: METFORMIN HYDROCHLORIDE
     Indication: TYPE 2 DIABETES MELLITUS

REACTIONS (13)
  - Skin bacterial infection [Not Recovered/Not Resolved]
  - Back pain [Recovered/Resolved]
  - Heart rate irregular [Recovered/Resolved]
  - Blood pressure inadequately controlled [Recovered/Resolved]
  - Nerve root compression [Unknown]
  - Ovarian cyst [Recovered/Resolved]
  - Muscle spasms [Unknown]
  - Intervertebral disc protrusion [Unknown]
  - Delayed recovery from anaesthesia [Recovered/Resolved]
  - Pain in jaw [Recovered/Resolved]
  - Rash erythematous [Unknown]
  - Anaesthetic complication [Recovered/Resolved]
  - Spondylitis [Recovered/Resolved]

NARRATIVE: CASE EVENT DATE: 2016
